FAERS Safety Report 4288557-5 (Version None)
Quarter: 2004Q1

REPORT INFORMATION
  Report Type: 
  Country: None (occurrence: None)
  Receive Date: 20040205
  Receipt Date: 20040123
  Transmission Date: 20041129
  Serious: Yes (Death)
  Sender: FDA-Public Use
  Company Number: 2004SE00340

PATIENT
  Age: 76 Year
  Sex: Male

DRUGS (5)
  1. BLOPRESS [Suspect]
     Dosage: 16 MG QD PO
     Route: 048
  2. SPIRONOLACTONE [Concomitant]
  3. CORANGIN [Concomitant]
  4. MARCUMAR [Concomitant]
  5. SOTALOL HCL [Concomitant]

REACTIONS (4)
  - MULTI-ORGAN FAILURE [None]
  - PAIN [None]
  - RHABDOMYOLYSIS [None]
  - SHOCK [None]
